FAERS Safety Report 5163105-6 (Version None)
Quarter: 2006Q4

REPORT INFORMATION
  Report Type: 
  Country: None (occurrence: None)
  Receive Date: 20061201
  Receipt Date: 20061106
  Transmission Date: 20070319
  Serious: Yes (Life-Threatening, Hospitalization, Other)
  Sender: FDA-Public Use
  Company Number: JP-MERCK-0611USA02433

PATIENT
  Age: 48 Year
  Sex: Male

DRUGS (4)
  1. PEPCID RPD [Suspect]
     Indication: GASTRITIS
     Route: 048
     Dates: start: 20060119, end: 20060217
  2. PANALDINE [Suspect]
     Indication: CEREBRAL INFARCTION
     Route: 048
     Dates: start: 20060106, end: 20060217
  3. ADETPHOS [Concomitant]
     Indication: CEREBRAL INFARCTION
     Route: 048
     Dates: start: 20060121, end: 20060217
  4. MEVALOTIN [Concomitant]
     Indication: HYPERLIPIDAEMIA
     Route: 048
     Dates: start: 20060130, end: 20060217

REACTIONS (3)
  - AGRANULOCYTOSIS [None]
  - HEPATIC FUNCTION ABNORMAL [None]
  - INFECTION [None]
